FAERS Safety Report 10515791 (Version 2)
Quarter: 2014Q4

REPORT INFORMATION
  Report Type: Spontaneous
  Country: US (occurrence: US)
  Receive Date: 20141014
  Receipt Date: 20141021
  Transmission Date: 20150528
  Serious: Yes (Hospitalization)
  Sender: FDA-Public Use
  Company Number: US-PFIZER INC-2014276645

PATIENT
  Age: 52 Year
  Sex: Female
  Weight: 90.7 kg

DRUGS (2)
  1. CRIZOTINIB [Suspect]
     Active Substance: CRIZOTINIB
     Dosage: 250 MG, 1X/DAY
  2. CRIZOTINIB [Suspect]
     Active Substance: CRIZOTINIB
     Indication: LUNG ADENOCARCINOMA STAGE IV
     Dosage: 500 MG, DAILY
     Dates: start: 20140927

REACTIONS (7)
  - Chest pain [Not Recovered/Not Resolved]
  - Body temperature increased [Unknown]
  - Abdominal pain lower [Not Recovered/Not Resolved]
  - Heart rate increased [Recovered/Resolved]
  - Chest discomfort [Not Recovered/Not Resolved]
  - Heart rate irregular [Recovered/Resolved]
  - Cough [Not Recovered/Not Resolved]

NARRATIVE: CASE EVENT DATE: 20140927
